FAERS Safety Report 10196702 (Version 1)
Quarter: 2014Q2

REPORT INFORMATION
  Report Type: Spontaneous
  Country: FR (occurrence: FR)
  Receive Date: 20140527
  Receipt Date: 20140527
  Transmission Date: 20141212
  Serious: Yes (Hospitalization)
  Sender: FDA-Public Use
  Company Number: FR-PFIZER INC-2014144475

PATIENT
  Age: 81 Year
  Sex: Male

DRUGS (5)
  1. PANTOPRAZOLE [Suspect]
     Dosage: UNK
     Route: 048
     Dates: start: 20140411, end: 20140419
  2. VOLTARENE [Suspect]
     Indication: SCIATICA
     Dosage: UNK
     Route: 048
     Dates: start: 20140411, end: 20140419
  3. AUGMENTIN [Suspect]
     Indication: ERYSIPELAS
     Dosage: UNK
     Route: 048
     Dates: start: 20140418, end: 20140419
  4. ENANTONE [Concomitant]
  5. CASODEX [Concomitant]

REACTIONS (3)
  - Eosinophilia [Recovering/Resolving]
  - Exfoliative rash [Recovering/Resolving]
  - Rash maculo-papular [Recovering/Resolving]
